FAERS Safety Report 4717588-3 (Version None)
Quarter: 2005Q3

REPORT INFORMATION
  Report Type: 
  Country: None (occurrence: None)
  Receive Date: 20050712
  Receipt Date: 20050511
  Transmission Date: 20060218
  Serious: No
  Sender: FDA-Public Use
  Company Number: 2005S1000088

PATIENT
  Age: 44 Year
  Sex: Female
  Weight: 79.8 kg

DRUGS (10)
  1. CUBICIN [Suspect]
     Indication: ARTHRITIS INFECTIVE
     Dosage: 6 MG/KG;Q24H;IV
     Route: 042
     Dates: start: 20050511
  2. CUBICIN [Suspect]
     Indication: BACTERAEMIA
     Dosage: 6 MG/KG;Q24H;IV
     Route: 042
     Dates: start: 20050511
  3. CUBICIN [Suspect]
     Indication: STAPHYLOCOCCAL INFECTION
     Dosage: 6 MG/KG;Q24H;IV
     Route: 042
     Dates: start: 20050511
  4. METFORMIN HCL [Concomitant]
  5. VALSARTAN [Concomitant]
  6. AMLODIPINE [Concomitant]
  7. NPH INSULIN [Concomitant]
  8. LORTAB [Concomitant]
  9. RIFAMPIN [Concomitant]
  10. ZOSYN [Concomitant]

REACTIONS (4)
  - ALANINE AMINOTRANSFERASE INCREASED [None]
  - ASPARTATE AMINOTRANSFERASE INCREASED [None]
  - BLOOD CREATINE PHOSPHOKINASE INCREASED [None]
  - RASH [None]
